FAERS Safety Report 9133822 (Version 1)
Quarter: 2013Q1

REPORT INFORMATION
  Report Type: Spontaneous
  Country: US (occurrence: US)
  Receive Date: 20130303
  Receipt Date: 20130303
  Transmission Date: 20140127
  Serious: No
  Sender: FDA-Public Use
  Company Number: US-ENDO PHARMACEUTICALS INC.-VANT20110067

PATIENT
  Age: 70 Year
  Sex: Male

DRUGS (1)
  1. VANTAS [Suspect]
     Indication: PROSTATE CANCER
     Route: 058

REACTIONS (3)
  - Weight increased [Unknown]
  - Hot flush [Unknown]
  - Fatigue [Unknown]
